FAERS Safety Report 12923917 (Version 1)
Quarter: 2016Q4

REPORT INFORMATION
  Report Type: Spontaneous
  Country: US (occurrence: US)
  Receive Date: 20161109
  Receipt Date: 20161109
  Transmission Date: 20170207
  Serious: Yes (Life-Threatening)
  Sender: FDA-Public Use
  Company Number: None

PATIENT
  Age: 28 Year
  Sex: Male
  Weight: 101.61 kg

DRUGS (2)
  1. VANCOMYCIN 250ML. BAGS 3X DAY [Suspect]
     Active Substance: VANCOMYCIN
     Indication: SEPSIS
     Dates: start: 20160919, end: 20161103
  2. PRENDVON [Concomitant]

REACTIONS (6)
  - Pyrexia [None]
  - Erythema [None]
  - Serum sickness [None]
  - Urticaria [None]
  - Joint swelling [None]
  - Stomatitis [None]
